FAERS Safety Report 16601520 (Version 1)
Quarter: 2019Q3

REPORT INFORMATION
  Report Type: Spontaneous
  Country: US (occurrence: US)
  Receive Date: 20190719
  Receipt Date: 20190719
  Transmission Date: 20191004
  Serious: No
  Sender: FDA-Public Use
  Company Number: US-ASCENT PHARMACEUTICALS, INC.-2071066

PATIENT
  Age: 53 Year
  Sex: Female
  Weight: 68.18 kg

DRUGS (4)
  1. PROMETHAZINE [Concomitant]
     Active Substance: PROMETHAZINE HYDROCHLORIDE
     Route: 065
  2. LEVOTHYROXINE. [Concomitant]
     Active Substance: LEVOTHYROXINE
     Route: 065
  3. CLONIDINE. [Concomitant]
     Active Substance: CLONIDINE
     Route: 065
  4. METHYLPHENIDATE HYDROCHLORIDE. [Suspect]
     Active Substance: METHYLPHENIDATE HYDROCHLORIDE
     Indication: ATTENTION DEFICIT/HYPERACTIVITY DISORDER
     Route: 048
     Dates: start: 20190523, end: 20190523

REACTIONS (10)
  - Urticaria [Recovered/Resolved]
  - Headache [Unknown]
  - Pruritus [Unknown]
  - Hypersensitivity [Unknown]
  - Rash [Unknown]
  - Feeling jittery [Unknown]
  - Nausea [Unknown]
  - Agitation [Unknown]
  - Vomiting [Recovered/Resolved]
  - Insomnia [Unknown]

NARRATIVE: CASE EVENT DATE: 20190523
